FAERS Safety Report 8817586 (Version 2)
Quarter: 2012Q4

REPORT INFORMATION
  Report Type: 
  Country: US (occurrence: US)
  Receive Date: 20121001
  Receipt Date: 20121116
  Transmission Date: 20130627
  Serious: Yes (Hospitalization)
  Sender: FDA-Public Use
  Company Number: US-BAYER-2012-099800

PATIENT
  Age: 25 Year
  Sex: Female
  Weight: 90.7 kg

DRUGS (5)
  1. OCELLA [Suspect]
     Indication: CONTRACEPTION
     Dosage: UNK
     Dates: start: 200806, end: 201104
  2. OCELLA [Suspect]
     Indication: IRREGULAR MENSTRUATION
  3. BEYAZ [Suspect]
     Indication: CONTRACEPTION
     Dosage: UNK
     Dates: start: 201105
  4. BEYAZ [Suspect]
     Indication: IRREGULAR MENSTRUATION
  5. IBUPROFEN [Concomitant]
     Dosage: UNK
     Dates: start: 2011

REACTIONS (12)
  - Gallbladder disorder [None]
  - Injury [None]
  - Abdominal pain upper [None]
  - General physical health deterioration [None]
  - Emotional distress [None]
  - Anxiety [None]
  - Pain [None]
  - Anhedonia [None]
  - Heart rate increased [None]
  - Chest pain [None]
  - Dyspnoea [None]
  - Anaemia [None]
